FAERS Safety Report 5950689-0 (Version None)
Quarter: 2008Q4

REPORT INFORMATION
  Report Type: 
  Country: None (occurrence: None)
  Receive Date: 20081022
  Receipt Date: 20080804
  Transmission Date: 20090506
  Serious: No
  Sender: FDA-Public Use
  Company Number: ALL1-2008-01846

PATIENT
  Age: 54 Year
  Sex: Female
  Weight: 86.2 kg

DRUGS (8)
  1. VYVANSE [Suspect]
     Indication: ATTENTION DEFICIT/HYPERACTIVITY DISORDER
     Dosage: 70 MG, 1X/DAY:QD, ORAL
     Route: 048
     Dates: start: 20080528, end: 20080626
  2. VYVANSE [Suspect]
     Indication: NARCOLEPSY
     Dosage: 70 MG, 1X/DAY:QD, ORAL
     Route: 048
     Dates: start: 20080528, end: 20080626
  3. ADDERALL 10 [Concomitant]
  4. SEROQUEL [Concomitant]
  5. GABAPENTIN [Concomitant]
  6. XANAX [Concomitant]
  7. EFFEXOR XR [Concomitant]
  8. DETROL LA [Concomitant]

REACTIONS (3)
  - ANXIETY [None]
  - APATHY [None]
  - SEDATION [None]
